FAERS Safety Report 5640150-5 (Version None)
Quarter: 2008Q1

REPORT INFORMATION
  Report Type: 
  Country: None (occurrence: None)
  Receive Date: 20080225
  Receipt Date: 20080218
  Transmission Date: 20080703
  Serious: Yes (Disabling)
  Sender: FDA-Public Use
  Company Number: A0711098A

PATIENT
  Age: 43 Year
  Sex: Male

DRUGS (1)
  1. WELLBUTRIN [Suspect]
     Indication: BIPOLAR DISORDER
     Dosage: 150 MG/ TWICE PER DAY/ ORAL
     Route: 048
     Dates: start: 20071211, end: 20080210

REACTIONS (1)
  - VISUAL ACUITY REDUCED [None]
